FAERS Safety Report 19243237 (Version 4)
Quarter: 2022Q4

REPORT INFORMATION
  Report Type: Other
  Country: CA (occurrence: None)
  Receive Date: 20210511
  Receipt Date: 20221212
  Transmission Date: 20230113
  Serious: Yes (Hospitalization)
  Sender: FDA-Public Use
  Company Number: CA-ROCHE-2825349

PATIENT
  Age: 28 Year
  Sex: Female

DRUGS (15)
  1. RITUXAN [Suspect]
     Active Substance: RITUXIMAB
     Indication: Vasculitis
     Route: 042
     Dates: start: 20210402, end: 20220121
  2. RITUXAN [Suspect]
     Active Substance: RITUXIMAB
     Indication: Granulomatosis with polyangiitis
     Dosage: DAY1, DAY 15
     Route: 042
     Dates: start: 20220623, end: 20220707
  3. RITUXAN [Suspect]
     Active Substance: RITUXIMAB
     Dosage: DAY 1, DAY 15
     Route: 042
     Dates: start: 20160118
  4. RITUXAN [Suspect]
     Active Substance: RITUXIMAB
     Dosage: 1 DOSE
     Route: 042
     Dates: start: 2017, end: 2017
  5. FRAGMIN [Concomitant]
     Active Substance: DALTEPARIN SODIUM
     Route: 058
  6. PREDNISONE [Concomitant]
     Active Substance: PREDNISONE
     Route: 065
  7. ACETAMINOPHEN [Concomitant]
     Active Substance: ACETAMINOPHEN
     Indication: Premedication
     Route: 048
     Dates: start: 20160203
  8. DIPHENHYDRAMINE HYDROCHLORIDE [Concomitant]
     Active Substance: DIPHENHYDRAMINE HYDROCHLORIDE
     Indication: Premedication
     Route: 048
     Dates: start: 20160203
  9. ELIQUIS [Concomitant]
     Active Substance: APIXABAN
  10. ONDANSETRON [Concomitant]
     Active Substance: ONDANSETRON
  11. PANTOPRAZOLE SODIUM [Concomitant]
     Active Substance: PANTOPRAZOLE SODIUM
  12. SEPTRA [Concomitant]
     Active Substance: SULFAMETHOXAZOLE\TRIMETHOPRIM
  13. SOLU-MEDROL [Concomitant]
     Active Substance: METHYLPREDNISOLONE SODIUM SUCCINATE
     Route: 042
     Dates: start: 20160203
  14. VITAMIN D [Concomitant]
     Active Substance: VITAMIN D NOS
  15. ZOFRAN [Concomitant]
     Active Substance: ONDANSETRON HYDROCHLORIDE

REACTIONS (5)
  - Deep vein thrombosis [Not Recovered/Not Resolved]
  - Pulmonary embolism [Not Recovered/Not Resolved]
  - Chest pain [Unknown]
  - Pulmonary thrombosis [Unknown]
  - Granulomatosis with polyangiitis [Unknown]

NARRATIVE: CASE EVENT DATE: 20210424
